FAERS Safety Report 24527475 (Version 1)
Quarter: 2024Q4

REPORT INFORMATION
  Report Type: Spontaneous
  Country: US (occurrence: US)
  Receive Date: 20241021
  Receipt Date: 20241021
  Transmission Date: 20250115
  Serious: Yes (Death, Other)
  Sender: BRISTOL-MYERS SQUIBB COMPANY
  Company Number: US-BRISTOL-MYERS SQUIBB COMPANY-2024-163305

PATIENT
  Age: 78 Year
  Sex: Female

DRUGS (1)
  1. LENALIDOMIDE [Suspect]
     Active Substance: LENALIDOMIDE
     Indication: Essential hypertension
     Dosage: 1 CAPSULE EVERY 24 HOURS ON DAYS 1-21 (TOTAL 21 DOSES) PER 28 DAY CYCLE
     Route: 048

REACTIONS (2)
  - Death [Fatal]
  - Off label use [Unknown]
